FAERS Safety Report 5776469 (Version 3)
Quarter: 2018Q4

REPORT INFORMATION
  Report Type: Spontaneous
  Country: DK (occurrence: DK)
  Receive Date: 20050415
  Receipt Date: 20181228
  Transmission Date: 20190205
  Serious: Yes (Death)
  Sender: FDA-Public Use
  Company Number: DK-ROCHE-400512

PATIENT
  Age: 15 Year
  Sex: Female
  Weight: 59 kg

DRUGS (1)
  1. ROACCUTAN [Suspect]
     Active Substance: ISOTRETINOIN
     Indication: ACNE
     Dosage: STYRKE: 20 MG
     Route: 048

REACTIONS (3)
  - Cardiac failure [Fatal]
  - Off label use [Fatal]
  - Intentional product use issue [Fatal]

NARRATIVE: CASE EVENT DATE: 20050316
